FAERS Safety Report 16760482 (Version 1)
Quarter: 2019Q3

REPORT INFORMATION
  Report Type: Spontaneous
  Country: CA (occurrence: CA)
  Receive Date: 20190830
  Receipt Date: 20190830
  Transmission Date: 20191005
  Serious: Yes (Other)
  Sender: FDA-Public Use
  Company Number: PHHY2019CA202269

PATIENT
  Age: 84 Year
  Sex: Female

DRUGS (3)
  1. VOLTAREN [Suspect]
     Active Substance: DICLOFENAC SODIUM
     Indication: PRODUCT USED FOR UNKNOWN INDICATION
     Dosage: UNK
     Route: 065
  2. VOLTAREN EMULGEL [Suspect]
     Active Substance: DICLOFENAC DIETHYLAMINE
     Indication: JOINT INJURY
     Dosage: UNK
     Route: 065
  3. VOLTAREN EMULGEL EXTRA STRENGHT [Suspect]
     Active Substance: DICLOFENAC DIETHYLAMINE
     Indication: ARTHRITIS
     Dosage: 100 G, UNK
     Route: 065

REACTIONS (4)
  - Thrombosis [Unknown]
  - Product use issue [Unknown]
  - Product prescribing issue [Unknown]
  - Contusion [Unknown]
